FAERS Safety Report 7593534-2 (Version None)
Quarter: 2011Q3

REPORT INFORMATION
  Report Type: 
  Country: None (occurrence: None)
  Receive Date: 20110706
  Receipt Date: 20110622
  Transmission Date: 20111222
  Serious: Yes (Other)
  Sender: FDA-Public Use
  Company Number: FI-TEVA-285485ISR

PATIENT
  Sex: Male

DRUGS (4)
  1. COPAXONE [Suspect]
     Indication: MULTIPLE SCLEROSIS
     Dosage: 20 MILLIGRAM;
     Route: 058
     Dates: start: 20060608
  2. DESLORATADINE [Concomitant]
     Route: 048
  3. VITAMIN TAB [Concomitant]
  4. SILDENAFIL CITRATE [Concomitant]
     Route: 048

REACTIONS (3)
  - INJECTION SITE DISCOLOURATION [None]
  - INJECTION SITE NECROSIS [None]
  - INJECTION SITE ERYTHEMA [None]
